FAERS Safety Report 8296253-2 (Version None)
Quarter: 2012Q2

REPORT INFORMATION
  Report Type: 
  Country: None (occurrence: None)
  Receive Date: 20120418
  Receipt Date: 20120416
  Transmission Date: 20120825
  Serious: Yes (Hospitalization)
  Sender: FDA-Public Use
  Company Number: US-GILEAD-2012-0049675

PATIENT
  Sex: Male

DRUGS (3)
  1. ENTECAVIR [Suspect]
     Indication: HEPATITIS B
     Dosage: 1 MG, QD
     Dates: start: 20111213, end: 20120106
  2. ADEFOVIR DIPIVOXIL [Suspect]
     Indication: HEPATITIS B
     Dosage: 10 MG, QD
     Route: 048
     Dates: start: 20090623, end: 20111011
  3. TENOFOVIR DISOPROXIL FUMARATE [Suspect]
     Indication: HEPATITIS B
     Dosage: 300 MG, QD
     Dates: start: 20111216, end: 20120106

REACTIONS (1)
  - HEPATITIS B [None]
